FAERS Safety Report 5699622-X (Version None)
Quarter: 2008Q2

REPORT INFORMATION
  Report Type: 
  Country: None (occurrence: None)
  Receive Date: 20080410
  Receipt Date: 20080331
  Transmission Date: 20081010
  Serious: Yes (Hospitalization)
  Sender: FDA-Public Use
  Company Number: PHRM2008FR01163

PATIENT
  Age: 73 Year
  Sex: Female
  Weight: 62 kg

DRUGS (8)
  1. ROCEPHIN [Suspect]
     Indication: LYME DISEASE
     Dosage: 2 MG, QD
     Route: 042
     Dates: start: 20080118, end: 20080208
  2. FELDENE [Suspect]
     Indication: POLYMYOSITIS
     Route: 048
     Dates: start: 20071201, end: 20080101
  3. KARDEGIC [Suspect]
     Route: 048
     Dates: end: 20080212
  4. LERCAN [Suspect]
     Route: 048
     Dates: end: 20080212
  5. VITAMIN D3 [Suspect]
     Route: 048
     Dates: end: 20080212
  6. CALCIUM CARBONATE [Suspect]
     Route: 048
     Dates: end: 20080212
  7. INIPOMP [Concomitant]
     Route: 048
  8. COTAREG [Suspect]
     Route: 048
     Dates: end: 20080212

REACTIONS (18)
  - APATHY [None]
  - ARTHRALGIA [None]
  - ASTHENIA [None]
  - BIOPSY KIDNEY [None]
  - BLOOD CREATININE INCREASED [None]
  - BORRELIA BURGDORFERI SEROLOGY POSITIVE [None]
  - COGNITIVE DISORDER [None]
  - CREATININE RENAL CLEARANCE DECREASED [None]
  - GENERAL PHYSICAL HEALTH DETERIORATION [None]
  - GRANULOMA [None]
  - HAEMATURIA [None]
  - LEUKOCYTURIA [None]
  - LYME DISEASE [None]
  - MYALGIA [None]
  - PROTEINURIA [None]
  - PSYCHOMOTOR SKILLS IMPAIRED [None]
  - RENAL FAILURE ACUTE [None]
  - TUBULOINTERSTITIAL NEPHRITIS [None]
